FAERS Safety Report 8103188-4 (Version None)
Quarter: 2012Q1

REPORT INFORMATION
  Report Type: 
  Country: None (occurrence: None)
  Receive Date: 20120127
  Receipt Date: 20120112
  Transmission Date: 20120608
  Serious: Yes (Hospitalization)
  Sender: FDA-Public Use
  Company Number: 7105974

PATIENT
  Age: 24 Year
  Sex: Female

DRUGS (3)
  1. KRIMSON 35 (ESTRADIOL AND CYPROPTERONE ACETATE) (DIANE) [Concomitant]
  2. METFORMIN HCL [Suspect]
     Indication: POLYCYSTIC OVARIES
     Dosage: 500 MG 3 IN 1 D
  3. CLOMIPHENE CITRATE [Suspect]
     Indication: OVULATION INDUCTION
     Dosage: 50 MG, 2ND TO 6TH DAY OF HER MENSTRUAL CYCLE  : DURING HER SECOND CYCLE

REACTIONS (5)
  - OFF LABEL USE [None]
  - HAEMORRHAGIC OVARIAN CYST [None]
  - RUPTURED ECTOPIC PREGNANCY [None]
  - MATERNAL EXPOSURE DURING PREGNANCY [None]
  - PREGNANCY [None]
